FAERS Safety Report 8220987-9 (Version None)
Quarter: 2012Q1

REPORT INFORMATION
  Report Type: 
  Country: None (occurrence: None)
  Receive Date: 20120320
  Receipt Date: 20120309
  Transmission Date: 20120608
  Serious: Yes (Death, Hospitalization)
  Sender: FDA-Public Use
  Company Number: FR-SANOFI-AVENTIS-2012SA015940

PATIENT
  Age: 69 Year
  Sex: Female

DRUGS (7)
  1. FENOFIBRATE [Suspect]
     Route: 048
     Dates: end: 20110226
  2. CANDESARTAN CILEXETIL AND HYDROCHLOROTHIAZIDE [Suspect]
     Dosage: DOSE:1 UNIT(S)
     Route: 048
     Dates: end: 20110226
  3. METFORMIN HYDROCHLORIDE/VILDAGLIPTIN [Suspect]
     Dosage: DOSE:1 UNIT(S)
     Route: 048
     Dates: end: 20110226
  4. BISOPROLOL FUMARATE AND HYDROCHLOROTHIAZIDE [Suspect]
     Dosage: DOSE:1 UNIT(S)
     Route: 048
     Dates: end: 20110226
  5. OMEPRAZOLE [Suspect]
     Route: 048
     Dates: end: 20110226
  6. ZOLPIDEM [Suspect]
     Route: 048
     Dates: start: 20110202, end: 20110226
  7. SODIUM PICOSULFATE [Suspect]
     Dosage: DOSE:1 UNIT(S)
     Route: 048
     Dates: start: 20110222, end: 20110223

REACTIONS (1)
  - RENAL FAILURE ACUTE [None]
